FAERS Safety Report 9644977 (Version 1)
Quarter: 2013Q4

REPORT INFORMATION
  Report Type: Spontaneous
  Country: US (occurrence: US)
  Receive Date: 20131025
  Receipt Date: 20131025
  Transmission Date: 20140711
  Serious: No
  Sender: FDA-Public Use
  Company Number: US-PFIZER INC-2013303157

PATIENT
  Age: 61 Year
  Sex: Female
  Weight: 58.9 kg

DRUGS (2)
  1. PROTONIX [Suspect]
     Indication: GASTROOESOPHAGEAL REFLUX DISEASE
     Dosage: 40 MG, 2X/DAY
     Dates: start: 2005
  2. EFFEXOR XR [Suspect]
     Indication: DEPRESSION
     Dosage: UNK, 2X/DAY

REACTIONS (2)
  - Ligament sprain [Recovering/Resolving]
  - Tendon injury [Recovering/Resolving]
